FAERS Safety Report 5150589-2 (Version None)
Quarter: 2006Q4

REPORT INFORMATION
  Report Type: 
  Country: None (occurrence: None)
  Receive Date: 20061114
  Receipt Date: 20061108
  Transmission Date: 20070319
  Serious: Yes (Other)
  Sender: FDA-Public Use
  Company Number: AU-BRISTOL-MYERS SQUIBB COMPANY-13570130

PATIENT
  Age: 40 Year
  Sex: Male

DRUGS (7)
  1. REYATAZ [Suspect]
     Indication: HIV INFECTION
     Route: 048
     Dates: start: 20050630, end: 20050708
  2. CLONAZEPAM [Concomitant]
     Indication: ANXIETY DISORDER
  3. VENLAFAXINE HCL [Concomitant]
     Indication: DEPRESSION
  4. COMBIVIR [Concomitant]
     Indication: HIV INFECTION
  5. AMPHOTERICIN B [Concomitant]
  6. ASPIRIN [Concomitant]
  7. CODEINE [Concomitant]

REACTIONS (6)
  - HYPERBILIRUBINAEMIA [None]
  - HYPERLIPIDAEMIA [None]
  - JAUNDICE [None]
  - NAUSEA [None]
  - SPLENOMEGALY [None]
  - VOMITING [None]
